FAERS Safety Report 16945890 (Version 3)
Quarter: 2019Q4

REPORT INFORMATION
  Report Type: Spontaneous
  Country: US (occurrence: US)
  Receive Date: 20191022
  Receipt Date: 20191029
  Transmission Date: 20200122
  Serious: Yes (Other)
  Sender: FDA-Public Use
  Company Number: IL-PFIZER INC-2019435987

PATIENT
  Age: 59 Year
  Sex: Male

DRUGS (1)
  1. NOREPINEPHRINE BITARTRATE. [Suspect]
     Active Substance: NOREPINEPHRINE BITARTRATE
     Indication: HYPOTENSION
     Dosage: UNK (4.27 MICROGRAM PER MIN, INFUSION THROUGH 20-GAUGE PERIPHERAL IV CATHETER) TAPERED OFF
     Route: 042

REACTIONS (1)
  - Phlebitis superficial [Recovered/Resolved]
